FAERS Safety Report 9907270 (Version 1)
Quarter: 2014Q1

REPORT INFORMATION
  Report Type: Spontaneous
  Country: US (occurrence: US)
  Receive Date: 20140218
  Receipt Date: 20140218
  Transmission Date: 20141002
  Serious: Yes (Death, Hospitalization, Other)
  Sender: FDA-Public Use
  Company Number: US-ABBVIE-14P-163-1201849-00

PATIENT
  Age: 81 Year
  Sex: Male
  Weight: 65.83 kg

DRUGS (6)
  1. HUMIRA [Suspect]
     Indication: CROHN^S DISEASE
     Route: 058
     Dates: start: 201308, end: 201308
  2. HUMIRA [Suspect]
     Dosage: 2 WEEKS AFTER THE FIRST DOSE
     Route: 058
     Dates: start: 201308, end: 201308
  3. HUMIRA [Suspect]
     Dosage: 4 WEEKS AFTER THE FIRST DOSE
     Route: 058
     Dates: start: 201309, end: 201401
  4. PENTASA [Concomitant]
     Indication: CROHN^S DISEASE
  5. FOLIC ACID [Concomitant]
     Indication: PRODUCT USED FOR UNKNOWN INDICATION
  6. UNKNOWN PAIN MEDICATION [Concomitant]
     Indication: PAIN
     Dates: start: 2014, end: 2014

REACTIONS (6)
  - Respiratory failure [Fatal]
  - Abdominal pain [Not Recovered/Not Resolved]
  - Gastric haemorrhage [Not Recovered/Not Resolved]
  - Radiation injury [Not Recovered/Not Resolved]
  - Pulmonary oedema [Unknown]
  - Gastrointestinal injury [Not Recovered/Not Resolved]
